FAERS Safety Report 8581022-6 (Version None)
Quarter: 2012Q3

REPORT INFORMATION
  Report Type: 
  Country: None (occurrence: None)
  Receive Date: 20120809
  Receipt Date: 20120807
  Transmission Date: 20120928
  Serious: No
  Sender: FDA-Public Use
  Company Number: US-PFIZER INC-2012192667

PATIENT
  Sex: Female

DRUGS (3)
  1. CELEBREX [Suspect]
     Indication: ARTHRALGIA
  2. CELEBREX [Suspect]
     Indication: OSTEOARTHRITIS
     Dosage: FOR 3 YEARS
  3. CELEBREX [Suspect]
     Indication: PAIN IN EXTREMITY

REACTIONS (1)
  - PAIN [None]
